FAERS Safety Report 11932015 (Version 4)
Quarter: 2016Q2

REPORT INFORMATION
  Report Type: Spontaneous
  Country: US (occurrence: US)
  Receive Date: 20160120
  Receipt Date: 20160527
  Transmission Date: 20160815
  Serious: Yes (Hospitalization)
  Sender: FDA-Public Use
  Company Number: US-PFIZER INC-2016027791

PATIENT
  Age: 66 Year
  Sex: Female
  Weight: 69 kg

DRUGS (10)
  1. AROMASIN [Suspect]
     Active Substance: EXEMESTANE
     Dosage: 25 MG, 1X/DAY (SEVEN DAYS A WEEK)
     Route: 048
     Dates: start: 20150821
  2. AROMASIN [Suspect]
     Active Substance: EXEMESTANE
     Dosage: 3 DF, WEEKLY
  3. AROMASIN [Suspect]
     Active Substance: EXEMESTANE
     Indication: BREAST CANCER
     Dosage: 25 MG, 1X/DAY (SEVEN DAYS A WEEK)
     Route: 048
     Dates: start: 201411, end: 20150414
  4. AROMASIN [Suspect]
     Active Substance: EXEMESTANE
     Dosage: 5 DF, WEEKLY
     Dates: start: 201510
  5. AMBIEN [Concomitant]
     Active Substance: ZOLPIDEM TARTRATE
     Indication: SLEEP DISORDER
     Dosage: 10 MG, AS NEEDED (EVERY HOUR)
  6. AROMASIN [Suspect]
     Active Substance: EXEMESTANE
     Dosage: UNK
     Route: 048
     Dates: end: 20160120
  7. DUEXIS [Concomitant]
     Active Substance: FAMOTIDINE\IBUPROFEN
     Dosage: 26.6 MG / 800 MG, 1X/DAY
     Route: 048
  8. ERGOCALCIFEROL. [Concomitant]
     Active Substance: ERGOCALCIFEROL
     Dosage: 5000 IU, WEEKLY
     Route: 048
  9. AROMASIN [Suspect]
     Active Substance: EXEMESTANE
     Dosage: 25 MG, 4X/DAY (4 TABLETS DAILY)
     Route: 048
  10. AROMASIN [Suspect]
     Active Substance: EXEMESTANE
     Dosage: 2 DF, WEEKLY

REACTIONS (8)
  - Drug intolerance [Recovered/Resolved]
  - Pruritus [Recovered/Resolved]
  - Alopecia [Recovered/Resolved]
  - Bone pain [Not Recovered/Not Resolved]
  - Mood swings [Unknown]
  - Anxiety [Unknown]
  - Mood altered [Recovered/Resolved]
  - Depression [Recovered/Resolved]

NARRATIVE: CASE EVENT DATE: 201502
